FAERS Safety Report 25632393 (Version 1)
Quarter: 2025Q3

REPORT INFORMATION
  Report Type: Spontaneous
  Country: US (occurrence: US)
  Receive Date: 20250801
  Receipt Date: 20250801
  Transmission Date: 20251020
  Serious: No
  Sender: Tarsus Pharmaceuticals
  Company Number: US-TARSUS PHARMACEUTICALS-TSP-US-2025-000629

PATIENT

DRUGS (1)
  1. XDEMVY [Suspect]
     Active Substance: LOTILANER
     Indication: Arthropod infestation
     Route: 047
     Dates: start: 202506

REACTIONS (5)
  - Vision blurred [Unknown]
  - Eye irritation [Unknown]
  - Ocular discomfort [Unknown]
  - Visual impairment [Unknown]
  - Product label issue [Unknown]

NARRATIVE: CASE EVENT DATE: 20250601
